FAERS Safety Report 16529041 (Version 2)
Quarter: 2019Q3

REPORT INFORMATION
  Report Type: Spontaneous
  Country: CN (occurrence: CN)
  Receive Date: 20190703
  Receipt Date: 20190704
  Transmission Date: 20191004
  Serious: Yes (Hospitalization, Disabling, Other)
  Sender: FDA-Public Use
  Company Number: CN-009507513-1907CHN000760

PATIENT
  Age: 54 Year
  Sex: Female

DRUGS (1)
  1. KEYTRUDA [Suspect]
     Active Substance: PEMBROLIZUMAB
     Indication: CERVIX CARCINOMA
     Dosage: 200 MG, QD, FOR THE THIRD CYCLE
     Dates: start: 20190419, end: 20190419

REACTIONS (6)
  - Inappropriate schedule of product administration [Unknown]
  - Platelet count decreased [Unknown]
  - Respiratory failure [Unknown]
  - Lung infection [Unknown]
  - Cardiac failure acute [Unknown]
  - Malignant neoplasm progression [Unknown]

NARRATIVE: CASE EVENT DATE: 2019
